FAERS Safety Report 7298349-0 (Version None)
Quarter: 2011Q1

REPORT INFORMATION
  Report Type: 
  Country: None (occurrence: None)
  Receive Date: 20110217
  Receipt Date: 20110209
  Transmission Date: 20110831
  Serious: Yes (Other)
  Sender: FDA-Public Use
  Company Number: FR-SANOFI-AVENTIS-2011SA004570

PATIENT
  Age: 89 Year
  Sex: Male

DRUGS (2)
  1. AMIODARONE [Concomitant]
     Indication: ARRHYTHMIA
     Route: 048
     Dates: end: 20110111
  2. MULTAQ [Suspect]
     Indication: ATRIAL FIBRILLATION
     Route: 048
     Dates: start: 20110112, end: 20110120

REACTIONS (4)
  - RENAL FAILURE ACUTE [None]
  - OEDEMA PERIPHERAL [None]
  - ACUTE PULMONARY OEDEMA [None]
  - AGEUSIA [None]
